FAERS Safety Report 9813788 (Version 1)
Quarter: 2014Q1

REPORT INFORMATION
  Report Type: Spontaneous
  Country: US (occurrence: US)
  Receive Date: 20140113
  Receipt Date: 20140113
  Transmission Date: 20141002
  Serious: Yes (Death)
  Sender: FDA-Public Use
  Company Number: US-PFIZER INC-2014006227

PATIENT
  Age: 33 Year
  Sex: Female

DRUGS (7)
  1. HYDROXYZINE PAMOATE [Suspect]
  2. ALPRAZOLAM [Suspect]
  3. PREGABALIN [Suspect]
  4. HYDROXYCHLOROQUINE [Suspect]
     Dosage: 200 MG, UNK
  5. METFORMIN [Suspect]
     Dosage: 500 MG, UNK
  6. ACETAMINOPHEN/DIPHENHYDRAMINE [Suspect]
  7. COCAINE [Suspect]

REACTIONS (1)
  - Completed suicide [Fatal]
